FAERS Safety Report 5078570-2 (Version None)
Quarter: 2006Q3

REPORT INFORMATION
  Report Type: 
  Country: None (occurrence: None)
  Receive Date: 20060808
  Receipt Date: 20060802
  Transmission Date: 20061208
  Serious: Yes (Hospitalization)
  Sender: FDA-Public Use
  Company Number: S06-USA-01066-02

PATIENT
  Sex: Female

DRUGS (3)
  1. CELEXA [Suspect]
     Dosage: 20 MG QD TRANSPLACENTAL
     Route: 064
     Dates: end: 20050929
  2. CELEXA [Suspect]
     Dosage: 20 MG QD BF
     Dates: start: 20050929
  3. ANCEF [Concomitant]

REACTIONS (15)
  - APGAR SCORE LOW [None]
  - CARDIOVASCULAR DISORDER [None]
  - COOMBS TEST POSITIVE [None]
  - DEPRESSION [None]
  - DRUG EXPOSURE DURING PREGNANCY [None]
  - DRUG EXPOSURE VIA BREAST MILK [None]
  - HYPOTONIA NEONATAL [None]
  - INSPIRATORY CAPACITY DECREASED [None]
  - JAUNDICE NEONATAL [None]
  - MATERNAL DRUGS AFFECTING FOETUS [None]
  - MEAN ARTERIAL PRESSURE DECREASED [None]
  - NEONATAL RESPIRATORY DEPRESSION [None]
  - NEONATAL TACHYPNOEA [None]
  - PNEUMONIA ASPIRATION [None]
  - WHITE BLOOD CELL COUNT INCREASED [None]
